FAERS Safety Report 9435682 (Version 1)
Quarter: 2013Q3

REPORT INFORMATION
  Report Type: Spontaneous
  Country: SE (occurrence: SE)
  Receive Date: 20130801
  Receipt Date: 20130801
  Transmission Date: 20140515
  Serious: Yes (Other)
  Sender: FDA-Public Use
  Company Number: SE-ASTRAZENECA-2013SE56455

PATIENT
  Sex: Female

DRUGS (6)
  1. SYMBIOCORT TURBUHALER [Suspect]
     Indication: ASTHMA
     Dosage: 160/4.5 MCG, 1 INHALATION, TWO TIMES DAILY
     Route: 055
  2. PARAFLEX [Concomitant]
     Indication: HEADACHE
  3. STESOLID [Concomitant]
     Indication: HEADACHE
  4. STILNOCT [Concomitant]
     Indication: SLEEP DISORDER
  5. XANOR [Concomitant]
     Indication: SLEEP DISORDER
  6. CITALOPRAM [Concomitant]
     Indication: SLEEP DISORDER

REACTIONS (1)
  - Lung infection [Not Recovered/Not Resolved]
